FAERS Safety Report 17232792 (Version 2)
Quarter: 2020Q2

REPORT INFORMATION
  Report Type: Spontaneous
  Country: US (occurrence: US)
  Receive Date: 20200103
  Receipt Date: 20200406
  Transmission Date: 20200713
  Serious: Yes (Hospitalization, Other)
  Sender: FDA-Public Use
  Company Number: US-JNJFOC-20191247119

PATIENT
  Age: 64 Year
  Sex: Male
  Weight: 147.55 kg

DRUGS (1)
  1. INVOKANA [Suspect]
     Active Substance: CANAGLIFLOZIN
     Indication: PRODUCT USED FOR UNKNOWN INDICATION
     Route: 048

REACTIONS (5)
  - Diabetic ulcer [Unknown]
  - Toe amputation [Unknown]
  - Gangrene [Unknown]
  - Osteomyelitis [Unknown]
  - Extremity necrosis [Unknown]

NARRATIVE: CASE EVENT DATE: 201508
